FAERS Safety Report 8407907-9 (Version None)
Quarter: 2012Q2

REPORT INFORMATION
  Report Type: 
  Country: None (occurrence: None)
  Receive Date: 20120604
  Receipt Date: 20120525
  Transmission Date: 20120825
  Serious: Yes (Hospitalization)
  Sender: FDA-Public Use
  Company Number: AU-ROCHE-1057467

PATIENT
  Age: 68 Year
  Sex: Male
  Weight: 72.5 kg

DRUGS (3)
  1. VEMURAFENIB [Suspect]
     Indication: METASTATIC MALIGNANT MELANOMA
     Dosage: LAST DOSE PRIOR TO SAE ON 05 APRIL 2012.
     Route: 048
     Dates: start: 20110729, end: 20120427
  2. CHLORSIG [Concomitant]
     Dates: start: 20111216
  3. ASPIRIN [Concomitant]
     Dates: start: 20120113

REACTIONS (2)
  - NEUROPATHY PERIPHERAL [None]
  - PERICARDITIS [None]
